FAERS Safety Report 12375524 (Version 3)
Quarter: 2016Q2

REPORT INFORMATION
  Report Type: Spontaneous
  Country: IT (occurrence: IT)
  Receive Date: 20160517
  Receipt Date: 20160614
  Transmission Date: 20160815
  Serious: Yes (Other)
  Sender: FDA-Public Use
  Company Number: IT-PFIZER INC-2016252977

PATIENT
  Age: 52 Year
  Sex: Female
  Weight: 97 kg

DRUGS (4)
  1. HALDOL [Suspect]
     Active Substance: HALOPERIDOL
     Indication: INTENTIONAL SELF-INJURY
     Dosage: 30 ML, TOTAL
     Route: 048
     Dates: start: 20160415, end: 20160415
  2. AMLODIPINE BESILATE [Suspect]
     Active Substance: AMLODIPINE BESYLATE
     Indication: INTENTIONAL SELF-INJURY
     Dosage: 28 DF, TOTAL
     Route: 048
     Dates: start: 20160415, end: 20160415
  3. RAMIPRIL/HYDROCHLOORTHIAZIDE [Suspect]
     Active Substance: HYDROCHLOROTHIAZIDE\RAMIPRIL
     Indication: INTENTIONAL SELF-INJURY
     Dosage: 14 DF, TOTAL
     Route: 048
     Dates: start: 20160415, end: 20160415
  4. TACHIPIRINA [Suspect]
     Active Substance: ACETAMINOPHEN
     Indication: INTENTIONAL SELF-INJURY
     Dosage: 20 DF, TOTAL
     Route: 048
     Dates: start: 20160415, end: 20160415

REACTIONS (3)
  - Hypotension [Unknown]
  - Self injurious behaviour [Unknown]
  - Intentional product misuse [Unknown]

NARRATIVE: CASE EVENT DATE: 20160415
